FAERS Safety Report 9531488 (Version 1)
Quarter: 2013Q3

REPORT INFORMATION
  Report Type: Spontaneous
  Country: US (occurrence: None)
  Receive Date: 20130916
  Receipt Date: 20130916
  Transmission Date: 20140515
  Serious: No
  Sender: FDA-Public Use
  Company Number: None

PATIENT
  Age: 30 Year
  Sex: Female
  Weight: 64.41 kg

DRUGS (1)
  1. CREST PROHEALTH MOUTHWASH [Suspect]
     Indication: DENTAL DISORDER PROPHYLAXIS
     Dates: start: 20130908, end: 20130909

REACTIONS (1)
  - Dysgeusia [None]
